FAERS Safety Report 6302428-1 (Version None)
Quarter: 2009Q3

REPORT INFORMATION
  Report Type: 
  Country: None (occurrence: None)
  Receive Date: 20090810
  Receipt Date: 20090731
  Transmission Date: 20100115
  Serious: Yes (Hospitalization, Other)
  Sender: FDA-Public Use
  Company Number: JP-JNJFOC-20090709238

PATIENT
  Sex: Male

DRUGS (3)
  1. LEVOFLOXACIN [Suspect]
     Indication: DRUG USE FOR UNKNOWN INDICATION
     Route: 048
  2. STEROIDS NOS [Suspect]
     Indication: DRUG USE FOR UNKNOWN INDICATION
     Route: 065
  3. GLYCYRON [Suspect]
     Indication: DRUG USE FOR UNKNOWN INDICATION
     Route: 065

REACTIONS (2)
  - ANAPHYLACTIC REACTION [None]
  - INTENTIONAL DRUG MISUSE [None]
